FAERS Safety Report 8452799 (Version 3)
Quarter: 2012Q4

REPORT INFORMATION
  Report Type: 
  Country: US (occurrence: US)
  Receive Date: 20120312
  Receipt Date: 20120919
  Transmission Date: 20130627
  Serious: No
  Sender: FDA-Public Use
  Company Number: US-PFIZER INC-2012063590

PATIENT
  Sex: Female

DRUGS (3)
  1. CHANTIX [Suspect]
     Indication: SMOKING CESSATION THERAPY
     Dosage: 0.5 mg, 1x/day
     Route: 048
     Dates: start: 201202, end: 201202
  2. CHANTIX [Suspect]
     Dosage: 0.5 mg, 2x/day
     Route: 048
     Dates: start: 201202, end: 2012
  3. CHANTIX [Suspect]
     Dosage: UNK
     Route: 048
     Dates: start: 2012

REACTIONS (5)
  - Pruritus [Unknown]
  - Impatience [Unknown]
  - Skin fissures [Not Recovered/Not Resolved]
  - Stress [Unknown]
  - Emotional disorder [Unknown]
